FAERS Safety Report 14163936 (Version 1)
Quarter: 2017Q4

REPORT INFORMATION
  Report Type: Spontaneous
  Country: US (occurrence: US)
  Receive Date: 20171107
  Receipt Date: 20171107
  Transmission Date: 20180321
  Serious: No
  Sender: FDA-Public Use
  Company Number: US-ASTRAZENECA-2017SF12768

PATIENT
  Age: 76 Year
  Sex: Female
  Weight: 49.9 kg

DRUGS (1)
  1. TUDORZA PRESSAIR [Suspect]
     Active Substance: ACLIDINIUM BROMIDE
     Dosage: 400.0UG UNKNOWN
     Route: 055

REACTIONS (4)
  - Product quality issue [Unknown]
  - Intentional product misuse [Unknown]
  - Drug dose omission [Unknown]
  - Fatigue [Unknown]
